FAERS Safety Report 7477118-2 (Version None)
Quarter: 2011Q2

REPORT INFORMATION
  Report Type: 
  Country: None (occurrence: None)
  Receive Date: 20110512
  Receipt Date: 20110124
  Transmission Date: 20111010
  Serious: No
  Sender: FDA-Public Use
  Company Number: US-NOVEN-11US001647

PATIENT
  Age: 10 Year
  Sex: Male

DRUGS (4)
  1. DAYTRANA [Suspect]
     Indication: ATTENTION DEFICIT/HYPERACTIVITY DISORDER
     Dosage: 10 MG, MON-FRI, 9 HOURS PER DAY
     Route: 062
  2. FLONASE [Concomitant]
     Indication: SEASONAL ALLERGY
     Dosage: UNK, PRN
     Route: 048
  3. MULTIVITAMIN                       /00097801/ [Concomitant]
     Indication: PRODUCT USED FOR UNKNOWN INDICATION
     Dosage: 1 TABLET, QD
     Route: 048
  4. ZYRTEC [Concomitant]
     Indication: SEASONAL ALLERGY
     Dosage: UNK, PRN
     Route: 048

REACTIONS (5)
  - DIZZINESS [None]
  - ABDOMINAL DISCOMFORT [None]
  - PRODUCT QUALITY ISSUE [None]
  - DRUG ADMINISTRATION ERROR [None]
  - FEELING ABNORMAL [None]
